FAERS Safety Report 4645841-0 (Version None)
Quarter: 2005Q2

REPORT INFORMATION
  Report Type: 
  Country: None (occurrence: None)
  Receive Date: 20050422
  Receipt Date: 20050422
  Transmission Date: 20051028
  Serious: Yes (Other)
  Sender: FDA-Public Use
  Company Number: None

PATIENT
  Sex: Male
  Weight: 106.5953 kg

DRUGS (6)
  1. MYCOPHENOLATE MOFETIL 500 MG TABS (ROCHE LABS) [Suspect]
     Indication: MYASTHENIA GRAVIS
     Dosage: 500 MG PO BID
     Route: 048
     Dates: start: 20010829
  2. PREDNISONE TAB [Concomitant]
  3. HYTRIN [Concomitant]
  4. NEXIUM [Concomitant]
  5. CRESTOR [Concomitant]
  6. TOPROL-XL [Concomitant]

REACTIONS (1)
  - MYELOID LEUKAEMIA [None]
